FAERS Safety Report 8476829 (Version 28)
Quarter: 2013Q4

REPORT INFORMATION
  Report Type: Spontaneous
  Country: CA (occurrence: CA)
  Receive Date: 20120326
  Receipt Date: 20131003
  Transmission Date: 20140711
  Serious: Yes (Other)
  Sender: FDA-Public Use
  Company Number: CA-ROCHE-1052220

PATIENT
  Age: 65 Year
  Sex: Female

DRUGS (15)
  1. XOLAIR [Suspect]
     Indication: ASTHMA
     Route: 058
     Dates: start: 20080723
  2. XOLAIR [Suspect]
     Route: 058
     Dates: start: 20090420
  3. XOLAIR [Suspect]
     Route: 058
     Dates: start: 20120807
  4. XOLAIR [Suspect]
     Route: 058
     Dates: start: 20121204
  5. XOLAIR [Suspect]
     Route: 058
     Dates: start: 20120206
  6. XOLAIR [Suspect]
     Route: 058
     Dates: start: 20120301
  7. XOLAIR [Suspect]
     Route: 058
     Dates: start: 20120319
  8. XOLAIR [Suspect]
     Route: 058
     Dates: start: 20120514
  9. XOLAIR [Suspect]
     Route: 058
     Dates: start: 20120719
  10. XOLAIR [Suspect]
     Route: 058
     Dates: start: 20130131
  11. LIPITOR [Concomitant]
  12. PREDNISONE [Concomitant]
     Route: 065
  13. PREDNISONE [Concomitant]
     Route: 065
  14. APO-TRIAZIDE [Concomitant]
  15. APO-FOLIC [Concomitant]

REACTIONS (21)
  - Blood pressure increased [Not Recovered/Not Resolved]
  - Pulmonary congestion [Unknown]
  - Wheezing [Unknown]
  - Blood cholesterol increased [Unknown]
  - Bronchiectasis [Not Recovered/Not Resolved]
  - Lower respiratory tract infection bacterial [Unknown]
  - Blood pressure decreased [Unknown]
  - Sciatica [Unknown]
  - Musculoskeletal pain [Unknown]
  - Dizziness [Unknown]
  - Nasopharyngitis [Unknown]
  - Cough [Not Recovered/Not Resolved]
  - Fatigue [Unknown]
  - Bronchial disorder [Unknown]
  - Contusion [Unknown]
  - Rheumatoid factor increased [Unknown]
  - Musculoskeletal discomfort [Not Recovered/Not Resolved]
  - Rheumatoid arthritis [Not Recovered/Not Resolved]
  - Rosacea [Unknown]
  - Lung disorder [Unknown]
  - Sinusitis [Unknown]
